FAERS Safety Report 17392733 (Version 1)
Quarter: 2020Q1

REPORT INFORMATION
  Report Type: Spontaneous
  Country: CN (occurrence: CN)
  Receive Date: 20200207
  Receipt Date: 20200207
  Transmission Date: 20200409
  Serious: Yes (Death, Life-Threatening, Hospitalization, Other)
  Sender: FDA-Public Use
  Company Number: CN-JNJFOC-20200147996

PATIENT
  Age: 20 Month
  Sex: Male

DRUGS (1)
  1. IBUPROFEN. [Suspect]
     Active Substance: IBUPROFEN
     Indication: PYREXIA
     Route: 048

REACTIONS (11)
  - Intracranial pressure increased [Not Recovered/Not Resolved]
  - Disseminated intravascular coagulation [Not Recovered/Not Resolved]
  - Brain oedema [Fatal]
  - Multiple organ dysfunction syndrome [Fatal]
  - Acute hepatic failure [Fatal]
  - Cardiomyopathy [Unknown]
  - Platelet count decreased [Unknown]
  - Brain herniation [Fatal]
  - Reye^s syndrome [Fatal]
  - Encephalopathy [Fatal]
  - Gastrointestinal haemorrhage [Unknown]
